FAERS Safety Report 5506204-9 (Version None)
Quarter: 2007Q4

REPORT INFORMATION
  Report Type: 
  Country: None (occurrence: None)
  Receive Date: 20071105
  Receipt Date: 20071029
  Transmission Date: 20080405
  Serious: Yes (Other)
  Sender: FDA-Public Use
  Company Number: BR-ASTRAZENECA-2007UW25233

PATIENT
  Age: 52 Year
  Sex: Male

DRUGS (4)
  1. SYMBICORT [Suspect]
     Indication: PNEUMOCONIOSIS
     Route: 055
     Dates: start: 20071001
  2. ESPIRIVA [Concomitant]
     Indication: ANTASTHMATIC DRUG LEVEL THERAPEUTIC
     Route: 055
  3. COMBIVENT [Concomitant]
     Indication: ANTASTHMATIC DRUG LEVEL THERAPEUTIC
     Route: 055
  4. BEROTEC [Concomitant]
     Indication: ANTASTHMATIC DRUG LEVEL THERAPEUTIC
     Route: 055

REACTIONS (2)
  - DRUG INEFFECTIVE [None]
  - DYSPNOEA [None]
